FAERS Safety Report 5325823-6 (Version None)
Quarter: 2007Q2

REPORT INFORMATION
  Report Type: 
  Country: None (occurrence: None)
  Receive Date: 20070510
  Receipt Date: 20070424
  Transmission Date: 20071010
  Serious: Yes (Disabling)
  Sender: FDA-Public Use
  Company Number: 8020298

PATIENT
  Age: 72 Year
  Sex: Male

DRUGS (4)
  1. PREDNISOLONE [Suspect]
     Indication: KERATITIS HERPETIC
     Dosage: 1 DF
     Dates: start: 20040601
  2. TIMOLOL MALEATE [Suspect]
     Indication: KERATITIS HERPETIC
     Dosage: 1 DF 2/D
     Dates: start: 20040601
  3. ACYCLOVIR [Concomitant]
  4. DIAMOX /00016901/ [Concomitant]

REACTIONS (2)
  - BLINDNESS [None]
  - CORNEAL DEPOSITS [None]
